FAERS Safety Report 19104806 (Version 2)
Quarter: 2021Q3

REPORT INFORMATION
  Report Type: Spontaneous
  Country: HR (occurrence: HR)
  Receive Date: 20210407
  Receipt Date: 20210719
  Transmission Date: 20211014
  Serious: Yes (Hospitalization, Other)
  Sender: FDA-Public Use
  Company Number: NVSC2021HR071276

PATIENT
  Sex: Male

DRUGS (1)
  1. KYMRIAH [Suspect]
     Active Substance: TISAGENLECLEUCEL
     Indication: PRODUCT USED FOR UNKNOWN INDICATION
     Dosage: UNK
     Route: 065
     Dates: start: 20201125

REACTIONS (8)
  - Pyrexia [Unknown]
  - Dyspnoea [Unknown]
  - Condition aggravated [Unknown]
  - Lung opacity [Recovering/Resolving]
  - Pneumonia [Recovering/Resolving]
  - Lung infiltration [Unknown]
  - SARS-CoV-2 test positive [Unknown]
  - Vasculitic rash [Unknown]

NARRATIVE: CASE EVENT DATE: 202011
